FAERS Safety Report 18353836 (Version 2)
Quarter: 2020Q4

REPORT INFORMATION
  Report Type: Spontaneous
  Country: US (occurrence: US)
  Receive Date: 20201007
  Receipt Date: 20201222
  Transmission Date: 20210114
  Serious: Yes (Other)
  Sender: FDA-Public Use
  Company Number: US-SA-2020SA274259

PATIENT

DRUGS (1)
  1. ZANTAC [Suspect]
     Active Substance: RANITIDINE HYDROCHLORIDE
     Indication: DYSPEPSIA
     Dosage: 300 MG, QD
     Dates: start: 198701, end: 201901

REACTIONS (2)
  - Lung carcinoma cell type unspecified stage III [Unknown]
  - Colorectal cancer stage III [Not Recovered/Not Resolved]

NARRATIVE: CASE EVENT DATE: 20100101
